FAERS Safety Report 5483697-7 (Version None)
Quarter: 2007Q4

REPORT INFORMATION
  Report Type: 
  Country: None (occurrence: None)
  Receive Date: 20071010
  Receipt Date: 20070924
  Transmission Date: 20080405
  Serious: Yes (Hospitalization)
  Sender: FDA-Public Use
  Company Number: B0489591A

PATIENT
  Sex: Male

DRUGS (4)
  1. PAROXETINE HYDROCHLORIDE CONTROLLED RELEASE [Suspect]
     Indication: DEPRESSION
     Dosage: 37.5 MG PER DAY/ TRANSPLACENTARY
     Route: 064
  2. CLONAZEPAM (FORMULATION UNKNOWN) (CLONAZEPAM) (GENERIC) [Suspect]
     Indication: DEPRESSION
     Dosage: PER DAY / TRANSPLACENTARY
     Route: 064
  3. OLANZAPINE (FORMULATION UNKNOWN) (OLANZAPINE) (GENERIC) [Suspect]
     Indication: DEPRESSION
     Dosage: 1.25 MG / PER DAY / TRANSPLACENTARY
     Route: 064
  4. AMPICILLIN TRIHYDRATE [Suspect]
     Indication: BETA HAEMOLYTIC STREPTOCOCCAL INFECTION
     Dosage: TRANSPLACENTARY
     Route: 064

REACTIONS (15)
  - APGAR SCORE LOW [None]
  - DECEREBRATION [None]
  - DRUG EXPOSURE DURING PREGNANCY [None]
  - DRUG SCREEN POSITIVE [None]
  - DRUG TOXICITY [None]
  - DRUG WITHDRAWAL SYNDROME NEONATAL [None]
  - FOOD INTOLERANCE [None]
  - HYPONATRAEMIA [None]
  - HYPOTONIA NEONATAL [None]
  - IRRITABILITY [None]
  - METABOLIC ACIDOSIS [None]
  - POSTURING [None]
  - RESPIRATORY DISORDER NEONATAL [None]
  - SLEEP DISORDER [None]
  - TACHYCARDIA [None]
